FAERS Safety Report 4894162-X (Version None)
Quarter: 2005Q4

REPORT INFORMATION
  Report Type: 
  Country: None (occurrence: None)
  Receive Date: 20051223
  Receipt Date: 20051019
  Transmission Date: 20060501
  Serious: No
  Sender: FDA-Public Use
  Company Number: 2005PV003365

PATIENT
  Age: 65 Year
  Sex: Female
  Weight: 101.1521 kg

DRUGS (19)
  1. SYMLIN [Suspect]
     Indication: DIABETES MELLITUS NON-INSULIN-DEPENDENT
     Dosage: 120 MCG; BID; SC
     Route: 058
     Dates: start: 20050905
  2. NOVOLOG [Concomitant]
  3. NOVOLIN N [Concomitant]
  4. GLUCOPHAGE [Concomitant]
  5. ACTOS [Concomitant]
  6. COREG [Concomitant]
  7. LISINOPRIL [Concomitant]
  8. HYDRALAZINE [Concomitant]
  9. ZAROXOLYN [Concomitant]
  10. LASIX [Concomitant]
  11. DIOVAN [Concomitant]
  12. LIPITOR [Concomitant]
  13. POTASSIUM [Concomitant]
  14. IRON [Concomitant]
  15. MAG-TAB [Concomitant]
  16. ULTRACET [Concomitant]
  17. ASPIRIN [Concomitant]
  18. PRILOSEC [Concomitant]
  19. XALATAN [Concomitant]

REACTIONS (3)
  - DECREASED APPETITE [None]
  - SENSATION OF FOREIGN BODY [None]
  - WEIGHT DECREASED [None]
